FAERS Safety Report 25302748 (Version 1)
Quarter: 2025Q2

REPORT INFORMATION
  Report Type: Spontaneous
  Country: US (occurrence: US)
  Receive Date: 20250512
  Receipt Date: 20250512
  Transmission Date: 20250716
  Serious: No
  Sender: INCYTE
  Company Number: US-EVENT-002484

PATIENT
  Age: 29 Year

DRUGS (1)
  1. OPZELURA [Suspect]
     Active Substance: RUXOLITINIB PHOSPHATE
     Indication: Dermatitis atopic
     Dosage: UNK, BID (ON HER ARMS AND NECK)

REACTIONS (2)
  - Dysphagia [Not Recovered/Not Resolved]
  - Lymphadenopathy [Not Recovered/Not Resolved]
